FAERS Safety Report 23186087 (Version 1)
Quarter: 2023Q4

REPORT INFORMATION
  Report Type: Report from Study
  Country: FR (occurrence: FR)
  Receive Date: 20231115
  Receipt Date: 20231115
  Transmission Date: 20240110
  Serious: Yes (Other)
  Sender: FDA-Public Use
  Company Number: FR-SA-2023SA343752

PATIENT

DRUGS (2)
  1. RIFAMPIN [Suspect]
     Active Substance: RIFAMPIN
     Indication: Prophylaxis
     Dosage: 75 MG, QD
  2. ISONIAZID [Suspect]
     Active Substance: ISONIAZID
     Indication: Prophylaxis
     Dosage: 50 MG, QD

REACTIONS (1)
  - Neuropathy peripheral [Unknown]
